FAERS Safety Report 18950145 (Version 1)
Quarter: 2021Q1

REPORT INFORMATION
  Report Type: Spontaneous
  Country: US (occurrence: US)
  Receive Date: 20210228
  Receipt Date: 20210228
  Transmission Date: 20210420
  Serious: No
  Sender: FDA-Public Use
  Company Number: US-LUPIN PHARMACEUTICALS INC.-2021-02329

PATIENT
  Sex: Female

DRUGS (1)
  1. CLOBETASOL PROPIONATE CREAM USP, 0.05 [Suspect]
     Active Substance: CLOBETASOL PROPIONATE
     Indication: HERPES ZOSTER
     Dosage: UNK
     Route: 061

REACTIONS (3)
  - Rash [Unknown]
  - Cystitis [Unknown]
  - Product prescribing issue [Unknown]
